FAERS Safety Report 8089309-0 (Version None)
Quarter: 2012Q1

REPORT INFORMATION
  Report Type: 
  Country: None (occurrence: None)
  Receive Date: 20120128
  Receipt Date: 20110729
  Transmission Date: 20120608
  Serious: Yes (Hospitalization)
  Sender: FDA-Public Use
  Company Number: US-ABBOTT-11P-163-0721901-00

PATIENT
  Age: 40 Year
  Sex: Female

DRUGS (2)
  1. LISINOPRIL [Concomitant]
     Indication: HYPERTENSION
  2. HUMIRA [Suspect]
     Indication: PSORIASIS
     Dates: start: 20110215, end: 20110530

REACTIONS (5)
  - BRONCHITIS [None]
  - ALOPECIA [None]
  - ASTHMA [None]
  - PSORIASIS [None]
  - PRURITUS [None]
